FAERS Safety Report 4788811-4 (Version None)
Quarter: 2005Q4

REPORT INFORMATION
  Report Type: 
  Country: None (occurrence: None)
  Receive Date: 20051005
  Receipt Date: 20050926
  Transmission Date: 20060501
  Serious: Yes (Hospitalization)
  Sender: FDA-Public Use
  Company Number: PHRM2005FR02566

PATIENT
  Age: 69 Year
  Sex: Female
  Weight: 160 kg

DRUGS (7)
  1. ZOMETA [Suspect]
     Indication: METASTASES TO BONE
     Dosage: 4 MG, QMO
     Route: 042
     Dates: start: 20021230, end: 20050707
  2. AREDIA [Suspect]
     Indication: METASTASES TO BONE
     Dosage: 60 MG TO 90 MG
     Route: 042
     Dates: end: 20020101
  3. TAXOTERE [Concomitant]
     Indication: METASTASES TO BONE
     Dosage: 120-160 MG
     Route: 042
     Dates: start: 20000901
  4. SOLU-MEDROL [Concomitant]
     Dosage: 60-80 MG
     Route: 042
  5. ONDANSETRON [Concomitant]
     Dosage: 8 MG
     Route: 042
  6. NOLVADEX [Concomitant]
  7. HEMI-DAONIL [Concomitant]

REACTIONS (5)
  - ACTINOMYCOSIS [None]
  - OSTEITIS [None]
  - OSTEONECROSIS [None]
  - OTORHINOLARYNGOLOGICAL SURGERY [None]
  - TOOTH ABSCESS [None]
